FAERS Safety Report 24432632 (Version 2)
Quarter: 2024Q4

REPORT INFORMATION
  Report Type: Spontaneous
  Country: US (occurrence: US)
  Receive Date: 20241014
  Receipt Date: 20241125
  Transmission Date: 20250115
  Serious: Yes (Hospitalization)
  Sender: LABORATOIRES SERB
  Company Number: US-SERB S.A.S.-2162974

PATIENT
  Age: 65 Year
  Sex: Female

DRUGS (4)
  1. DIGIFAB [Suspect]
     Active Substance: OVINE DIGOXIN IMMUNE FAB
     Indication: Toxicity to various agents
  2. APIXABAN [Suspect]
     Active Substance: APIXABAN
  3. ENOXAPARIN [Suspect]
     Active Substance: ENOXAPARIN
  4. UNSPECIFIED INGREDIENT [Suspect]
     Active Substance: UNSPECIFIED INGREDIENT

REACTIONS (1)
  - Drug ineffective [Unknown]
